FAERS Safety Report 6449662-8 (Version None)
Quarter: 2009Q4

REPORT INFORMATION
  Report Type: 
  Country: None (occurrence: None)
  Receive Date: 20091120
  Receipt Date: 20091112
  Transmission Date: 20100525
  Serious: Yes (Other)
  Sender: FDA-Public Use
  Company Number: PHHY2009BR49780

PATIENT
  Sex: Female
  Weight: 73 kg

DRUGS (3)
  1. TRILEPTAL [Suspect]
     Indication: EPILEPSY
     Dosage: 3 TABLETS DAILY
     Route: 048
  2. EDHANOL (PHENOBARBITONE) [Concomitant]
     Indication: EPILEPSY
     Dosage: 1 TABLET AT NIGHT
     Route: 048
  3. FERROUS SULFATE TAB [Concomitant]

REACTIONS (8)
  - ANXIETY [None]
  - BREAST FEEDING [None]
  - CAESAREAN SECTION [None]
  - CRYING [None]
  - DRUG EXPOSURE DURING PREGNANCY [None]
  - FEELING ABNORMAL [None]
  - NERVOUSNESS [None]
  - NORMAL NEWBORN [None]
